FAERS Safety Report 10178169 (Version 1)
Quarter: 2014Q2

REPORT INFORMATION
  Report Type: Spontaneous
  Country: DE (occurrence: DE)
  Receive Date: 20140519
  Receipt Date: 20140519
  Transmission Date: 20141212
  Serious: Yes (Other)
  Sender: FDA-Public Use
  Company Number: DE-ROCHE-1400653

PATIENT
  Age: 76 Year
  Sex: Male

DRUGS (6)
  1. MABTHERA [Suspect]
     Indication: CHRONIC LYMPHOCYTIC LEUKAEMIA
     Route: 065
     Dates: start: 201003, end: 201005
  2. MABTHERA [Suspect]
     Route: 065
     Dates: start: 201207, end: 201212
  3. BENDAMUSTINE [Suspect]
     Indication: CHRONIC LYMPHOCYTIC LEUKAEMIA
     Route: 065
     Dates: start: 201003, end: 201005
  4. BENDAMUSTINE [Suspect]
     Route: 065
     Dates: start: 201207, end: 201212
  5. COTRIMOXAZOLE [Concomitant]
     Indication: ANTIFUNGAL PROPHYLAXIS
     Route: 065
     Dates: start: 201003, end: 201005
  6. COTRIMOXAZOLE [Concomitant]
     Route: 065
     Dates: start: 201207, end: 201212

REACTIONS (2)
  - Angina unstable [Unknown]
  - Coronary artery disease [Unknown]
